FAERS Safety Report 18104127 (Version 1)
Quarter: 2020Q3

REPORT INFORMATION
  Report Type: Spontaneous
  Country: US (occurrence: US)
  Receive Date: 20200801
  Receipt Date: 20200801
  Transmission Date: 20201103
  Serious: Yes (Life-Threatening, Disabling, Other)
  Sender: FDA-Public Use
  Company Number: None

PATIENT
  Age: 43 Year
  Sex: Female
  Weight: 76.5 kg

DRUGS (7)
  1. SPIRONOLACTONE. [Concomitant]
     Active Substance: SPIRONOLACTONE
  2. PROTONIX [Concomitant]
     Active Substance: PANTOPRAZOLE SODIUM
  3. ZONISAMIDE. [Suspect]
     Active Substance: ZONISAMIDE
     Indication: SEIZURE
     Dosage: ?          QUANTITY:2 CAPSULE(S);?
     Route: 048
     Dates: start: 20200601, end: 20200727
  4. ATIVAN [Concomitant]
     Active Substance: LORAZEPAM
  5. TIZANIDINE. [Concomitant]
     Active Substance: TIZANIDINE
  6. RESOUVESTATIN [Concomitant]
  7. AMLODIPINE [Concomitant]
     Active Substance: AMLODIPINE BESYLATE

REACTIONS (15)
  - Oxygen saturation decreased [None]
  - Dyspnoea [None]
  - Chest pain [None]
  - Heart rate decreased [None]
  - Generalised tonic-clonic seizure [None]
  - Arrhythmia [None]
  - Nausea [None]
  - Postural orthostatic tachycardia syndrome [None]
  - Palpitations [None]
  - Blood pressure abnormal [None]
  - Dyspnoea exertional [None]
  - Seizure [None]
  - Syncope [None]
  - Presyncope [None]
  - Fatigue [None]

NARRATIVE: CASE EVENT DATE: 20200610
